FAERS Safety Report 6173004-9 (Version None)
Quarter: 2009Q2

REPORT INFORMATION
  Report Type: 
  Country: None (occurrence: None)
  Receive Date: 20090428
  Receipt Date: 20090415
  Transmission Date: 20091009
  Serious: No
  Sender: FDA-Public Use
  Company Number: 2009-194117-NL

PATIENT
  Age: 44 Year
  Sex: Female

DRUGS (1)
  1. ETONOGESTREL [Suspect]
     Dosage: DF
     Dates: start: 20031001, end: 20060804

REACTIONS (6)
  - COMPLICATION OF DEVICE REMOVAL [None]
  - IMPLANT SITE NERVE INJURY [None]
  - MENSTRUAL DISORDER [None]
  - NERVOUSNESS [None]
  - NEURALGIA [None]
  - PROCEDURAL PAIN [None]
